FAERS Safety Report 4343433-4 (Version None)
Quarter: 2004Q2

REPORT INFORMATION
  Report Type: 
  Country: None (occurrence: None)
  Receive Date: 20040419
  Receipt Date: 20040408
  Transmission Date: 20050107
  Serious: No
  Sender: FDA-Public Use
  Company Number: 2004UW07155

PATIENT
  Sex: Female

DRUGS (1)
  1. ARIMIDEX [Suspect]
     Dosage: 1 MG PO
     Route: 048

REACTIONS (1)
  - CONVULSION [None]
